FAERS Safety Report 10279879 (Version 1)
Quarter: 2014Q3

REPORT INFORMATION
  Report Type: Spontaneous
  Country: US (occurrence: None)
  Receive Date: 20140701
  Receipt Date: 20140701
  Transmission Date: 20150326
  Serious: Yes (Disabling)
  Sender: FDA-Public Use
  Company Number: None

PATIENT
  Age: 55 Year
  Sex: Female
  Weight: 58.97 kg

DRUGS (8)
  1. CIPROFLOXACIN HCL [Suspect]
     Active Substance: CIPROFLOXACIN HYDROCHLORIDE
     Indication: URINARY TRACT INFECTION
     Dosage: 1 PILL 2X DAY/EVERY 12 HR. BY MOUTH
     Route: 048
     Dates: start: 20140615, end: 20140617
  2. TYLENOL [Concomitant]
     Active Substance: ACETAMINOPHEN
  3. PRILOSEC [Concomitant]
     Active Substance: OMEPRAZOLE MAGNESIUM
  4. HYDROCHLOROTIAZINE [Concomitant]
  5. SULINDAC. [Concomitant]
     Active Substance: SULINDAC
  6. ALEVE [Concomitant]
     Active Substance: NAPROXEN SODIUM
  7. KRILL OIL [Concomitant]
     Active Substance: DIETARY SUPPLEMENT
  8. VITAMIN D [Concomitant]
     Active Substance: CHOLECALCIFEROL

REACTIONS (12)
  - Pain in extremity [None]
  - Gait disturbance [None]
  - Dizziness [None]
  - Depression [None]
  - Musculoskeletal pain [None]
  - Myalgia [None]
  - Tremor [None]
  - Groin pain [None]
  - Anxiety [None]
  - Palpitations [None]
  - Arthralgia [None]
  - Asthenia [None]

NARRATIVE: CASE EVENT DATE: 20140615
